FAERS Safety Report 7406612-5 (Version None)
Quarter: 2011Q2

REPORT INFORMATION
  Report Type: 
  Country: None (occurrence: None)
  Receive Date: 20110411
  Receipt Date: 20110404
  Transmission Date: 20111010
  Serious: Yes (Hospitalization, Other)
  Sender: FDA-Public Use
  Company Number: US-US-EMD SERONO, INC.-7039386

PATIENT
  Sex: Female

DRUGS (4)
  1. XANAX [Concomitant]
  2. REBIF [Suspect]
     Indication: PRODUCT USED FOR UNKNOWN INDICATION
     Route: 058
     Dates: start: 20110105, end: 20110101
  3. REBIF [Suspect]
     Route: 058
     Dates: start: 20110101
  4. REBIF [Suspect]
     Route: 058
     Dates: start: 20110101, end: 20110307

REACTIONS (5)
  - URETHRAL OPERATION [None]
  - ANAEMIA [None]
  - CATHETER SITE INFECTION [None]
  - HAEMATOMA [None]
  - INFLUENZA LIKE ILLNESS [None]
